FAERS Safety Report 7432013-X (Version None)
Quarter: 2011Q1

REPORT INFORMATION
  Report Type: 
  Country: None (occurrence: None)
  Receive Date: 20110302
  Receipt Date: 20101108
  Transmission Date: 20110831
  Serious: Yes (Hospitalization)
  Sender: FDA-Public Use
  Company Number: 021094

PATIENT
  Sex: Female
  Weight: 70.5 kg

DRUGS (11)
  1. COLACE [Concomitant]
  2. LEVSIN/SL [Concomitant]
  3. LOMOTIL [Concomitant]
  4. CIMZIA [Suspect]
     Indication: CROHN'S DISEASE
     Dosage: SUBCUTANEOUS, 400 MG 1X/4 WEEKS SUBCUTANEOUS
     Route: 058
     Dates: start: 20101027
  5. CIMZIA [Suspect]
     Indication: CROHN'S DISEASE
     Dosage: SUBCUTANEOUS, 400 MG 1X/4 WEEKS SUBCUTANEOUS
     Route: 058
     Dates: start: 20100908
  6. CYANOCOBALAMIN [Concomitant]
  7. ANUSOL HC [Concomitant]
  8. IMODIUM MULTI-SYMPTOM RELIEF [Concomitant]
  9. CIPRO [Concomitant]
  10. FLAGYL [Concomitant]
  11. IRON [Concomitant]

REACTIONS (4)
  - MUSCULAR WEAKNESS [None]
  - ABDOMINAL PAIN UPPER [None]
  - CROHN'S DISEASE [None]
  - VOMITING [None]
